FAERS Safety Report 12556204 (Version 3)
Quarter: 2016Q3

REPORT INFORMATION
  Report Type: Spontaneous
  Country: US (occurrence: US)
  Receive Date: 20160714
  Receipt Date: 20160927
  Transmission Date: 20161109
  Serious: Yes (Other)
  Sender: FDA-Public Use
  Company Number: US-PFIZER INC-2016297831

PATIENT
  Age: 80 Year
  Sex: Female
  Weight: 75 kg

DRUGS (23)
  1. ARIMIDEX [Suspect]
     Active Substance: ANASTROZOLE
     Indication: CANCER HORMONAL THERAPY
  2. ANASTROZOLE ACCORD [Suspect]
     Active Substance: ANASTROZOLE
     Indication: BREAST CANCER
     Dosage: 1 MG, UNK
     Route: 065
  3. OCUVITE [Concomitant]
     Active Substance: VITAMINS
     Dosage: 5 MG-150 MG
     Route: 065
  4. CARVEDILOL. [Concomitant]
     Active Substance: CARVEDILOL
     Dosage: 12.5MG
     Route: 065
  5. POTASSIUM [Concomitant]
     Active Substance: POTASSIUM
     Dosage: 99 MG, UNK
     Route: 065
  6. FASLODEX [Suspect]
     Active Substance: FULVESTRANT
     Dosage: 500 MG, CYCLIC (IM Q 28 DAYS) (2 250 MG INJECTIONS)
     Route: 030
     Dates: start: 201603, end: 20160701
  7. PROCHLORPERAZINE MALEATE. [Concomitant]
     Active Substance: PROCHLORPERAZINE MALEATE
     Dosage: 10 MG, UNK
     Route: 065
  8. BENAZEPRIL [Concomitant]
     Active Substance: BENAZEPRIL HYDROCHLORIDE
     Dosage: 40 MG, UNK
     Route: 065
  9. BENADRYL [Concomitant]
     Active Substance: DIPHENHYDRAMINE HYDROCHLORIDE
     Dosage: 25 MG, UNK
     Route: 065
  10. TAXOTERE [Suspect]
     Active Substance: DOCETAXEL
     Indication: BREAST CANCER STAGE II
     Dosage: UNK  (4 CYCLES ADJUVANT CHEMOTHERAPY (1 IN 1 CYCLICAL)
     Route: 065
     Dates: start: 20110217
  11. CYTOXAN [Suspect]
     Active Substance: CYCLOPHOSPHAMIDE
     Indication: BREAST CANCER STAGE II
     Dosage: UNK (4 CYCLES ADJUVANT CHEMOTHERAPY (1 IN 1 CYCLICAL)
     Route: 065
     Dates: start: 20110217
  12. FASLODEX [Suspect]
     Active Substance: FULVESTRANT
     Indication: BREAST CANCER METASTATIC
     Dosage: UNK, CYCLIC (FOR 3 DOSES (2 CYCLES) (1 IN 2 WK))
     Route: 030
     Dates: start: 201603
  13. CYANOCOBALAMIN. [Concomitant]
     Active Substance: CYANOCOBALAMIN
     Dosage: 1000 UNK, UNK
     Route: 065
  14. GLIPIZIDE. [Concomitant]
     Active Substance: GLIPIZIDE
     Dosage: 10 MG, UNK
     Route: 065
  15. IBRANCE [Suspect]
     Active Substance: PALBOCICLIB
     Indication: BREAST CANCER METASTATIC
     Dosage: 125 MG, CYCLIC (D1-21 Q4 WEEKS, 2 CYCLES (125 MG,21 IN 4 WK) (DAILYX21 D OF 28 D CYCLE)
     Route: 048
     Dates: start: 201603, end: 201607
  16. ANASTROZOLE TEVA [Suspect]
     Active Substance: ANASTROZOLE
     Indication: BREAST CANCER
     Dosage: 1 MG, UNK
     Route: 065
  17. OCUVITE [Concomitant]
     Active Substance: VITAMINS
     Dosage: 150 MG-30 UNIT
     Route: 065
  18. ARIMIDEX [Suspect]
     Active Substance: ANASTROZOLE
     Indication: BREAST CANCER
     Dosage: UNK
     Route: 065
     Dates: start: 201108
  19. VITAMIN D3 [Concomitant]
     Active Substance: CHOLECALCIFEROL
     Dosage: 2000 IU, UNK
     Route: 065
  20. TYLENOL [Concomitant]
     Active Substance: ACETAMINOPHEN
     Dosage: 352 MG, UNK
     Route: 065
  21. FASLODEX [Suspect]
     Active Substance: FULVESTRANT
     Dosage: 500 MG, CYCLIC (CYCLICAL, CYCLE 3 D1 (500 MG,1 IN 1 M) (IM Q 28 DAYS)
     Route: 030
     Dates: start: 20160506
  22. OMEGA 3 [Concomitant]
     Active Substance: OMEGA-3 FATTY ACIDS
     Dosage: UNK (350 MG-400 MG)
     Route: 065
  23. HYDROCHLOROTHIAZIDE. [Concomitant]
     Active Substance: HYDROCHLOROTHIAZIDE
     Dosage: 25 MG, UNK
     Route: 065

REACTIONS (21)
  - Hiatus hernia [Unknown]
  - Urinary incontinence [Unknown]
  - Hypoaesthesia [Recovering/Resolving]
  - Paraesthesia [Recovering/Resolving]
  - Disease progression [Unknown]
  - Pulmonary mass [Unknown]
  - Discomfort [Unknown]
  - Neurotoxicity [Unknown]
  - Breast cancer metastatic [Unknown]
  - Folate deficiency [Unknown]
  - Asthenia [Unknown]
  - Pain [Recovered/Resolved]
  - Post procedural hypothyroidism [Unknown]
  - Pollakiuria [Unknown]
  - Amnesia [Unknown]
  - Musculoskeletal stiffness [Unknown]
  - Febrile neutropenia [Unknown]
  - Dysuria [Unknown]
  - Hypertension [Unknown]
  - Type 2 diabetes mellitus [Unknown]
  - Muscular weakness [Recovering/Resolving]

NARRATIVE: CASE EVENT DATE: 201602
